FAERS Safety Report 10608730 (Version 7)
Quarter: 2015Q2

REPORT INFORMATION
  Report Type: Report from Study
  Country: JP (occurrence: JP)
  Receive Date: 20141125
  Receipt Date: 20150406
  Transmission Date: 20150821
  Serious: Yes (Death, Hospitalization, Other)
  Sender: FDA-Public Use
  Company Number: JP-B.I. PHARMACEUTICALS,INC./RIDGEFIELD-2014-BI-55966NB

PATIENT
  Age: 74 Year
  Sex: Male
  Weight: 57.6 kg

DRUGS (15)
  1. LASIX [Concomitant]
     Active Substance: FUROSEMIDE
     Indication: HYPERTENSION
     Dosage: 2 ANZ
     Route: 048
     Dates: start: 20141106, end: 20141228
  2. BECTMIRAN [Concomitant]
     Indication: PALMAR-PLANTAR ERYTHRODYSAESTHESIA SYNDROME
     Route: 062
     Dates: start: 20141018, end: 20141228
  3. AIMIX [Concomitant]
     Active Substance: AMLODIPINE BESYLATE\IRBESARTAN
     Indication: HYPERTENSION
     Dosage: 2 ANZ
     Route: 048
     Dates: start: 20141106, end: 20141228
  4. PIARLE [Concomitant]
     Indication: CHRONIC HEPATITIS C
     Dosage: 30 ML
     Route: 048
     Dates: start: 20141128, end: 20141228
  5. BIBF 1120 [Suspect]
     Active Substance: NINTEDANIB
     Indication: HEPATOCELLULAR CARCINOMA
     Dosage: 400 MG
     Route: 065
     Dates: start: 20141024, end: 20141114
  6. LIVACT [Concomitant]
     Active Substance: AMINO ACIDS
     Indication: CHRONIC HEPATITIS C
     Dosage: 3 ANZ
     Route: 048
     Dates: start: 20140619, end: 20141228
  7. NEXIUM [Concomitant]
     Active Substance: ESOMEPRAZOLE MAGNESIUM
     Indication: PROPHYLAXIS
     Dosage: 1 ANZ
     Route: 048
     Dates: start: 20130901, end: 20131228
  8. LANSOPRAZOLE OD [Concomitant]
     Active Substance: LANSOPRAZOLE
     Indication: GASTRITIS PROPHYLAXIS
     Dosage: 1 ANZ
     Route: 048
     Dates: start: 20141128, end: 20141228
  9. ALDACTONE [Concomitant]
     Active Substance: SPIRONOLACTONE
     Indication: OEDEMA PERIPHERAL
     Dosage: 4 ANZ
     Route: 048
     Dates: start: 20141114, end: 20141228
  10. URSODEOXYCHOLIC ACID [Concomitant]
     Active Substance: URSODIOL
     Indication: CHRONIC HEPATITIS C
     Dosage: 3 ANZ
     Route: 048
     Dates: start: 2004, end: 20141228
  11. GLYPHAGEN [Concomitant]
     Indication: CHRONIC HEPATITIS C
     Route: 042
     Dates: start: 20140619, end: 20141228
  12. LOXOPROFEN [Concomitant]
     Active Substance: LOXOPROFEN
     Indication: TUMOUR PAIN
     Dosage: 2 ANZ
     Route: 048
     Dates: start: 20140728, end: 20141228
  13. LOPERAMIDE [Concomitant]
     Active Substance: LOPERAMIDE
     Indication: PROPHYLAXIS AGAINST DIARRHOEA
     Route: 048
     Dates: start: 20141112, end: 20141228
  14. PREDONINE [Concomitant]
     Active Substance: PREDNISOLONE\PREDNISOLONE ACETATE\PREDNISOLONE SODIUM SUCCINATE
     Indication: HEPATOCELLULAR CARCINOMA
     Dosage: 20 MG
     Route: 048
     Dates: start: 20141128, end: 20141228
  15. BAKTAR [Concomitant]
     Active Substance: SULFAMETHOXAZOLE\TRIMETHOPRIM
     Indication: INFECTION PROPHYLAXIS
     Dosage: 20 MG
     Route: 048
     Dates: start: 20141128, end: 20141228

REACTIONS (3)
  - Malignant neoplasm progression [Fatal]
  - Drug-induced liver injury [Recovered/Resolved]
  - Pyrexia [Recovered/Resolved]

NARRATIVE: CASE EVENT DATE: 20141117
